FAERS Safety Report 21364862 (Version 3)
Quarter: 2022Q4

REPORT INFORMATION
  Report Type: Spontaneous
  Country: US (occurrence: US)
  Receive Date: 20220922
  Receipt Date: 20221018
  Transmission Date: 20230113
  Serious: Yes (Other)
  Sender: FDA-Public Use
  Company Number: US-JAZZ-2022-US-029954

PATIENT
  Sex: Female

DRUGS (2)
  1. EPIDIOLEX [Suspect]
     Active Substance: CANNABIDIOL
     Indication: Seizure
     Dosage: 0.7 MILLILITER DAILY
     Dates: start: 20220906
  2. EPIDIOLEX [Suspect]
     Active Substance: CANNABIDIOL
     Dosage: 2.5 MILLILITER DAILY
     Dates: start: 20220916

REACTIONS (4)
  - Seizure [Unknown]
  - Mood altered [Unknown]
  - Aggression [Unknown]
  - Drug ineffective [Unknown]
